FAERS Safety Report 14653218 (Version 1)
Quarter: 2018Q1

REPORT INFORMATION
  Report Type: Spontaneous
  Country: US (occurrence: US)
  Receive Date: 20180316
  Receipt Date: 20180316
  Transmission Date: 20180509
  Serious: Yes (Disabling, Congenital Anomaly)
  Sender: FDA-Public Use
  Company Number: None

PATIENT
  Age: 33 Year
  Sex: Female
  Weight: 61.23 kg

DRUGS (4)
  1. PRENATALS WITH IRON [Concomitant]
  2. FLINSTONES VITIMINS [Concomitant]
  3. RHOGAM [Suspect]
     Active Substance: HUMAN RHO(D) IMMUNE GLOBULIN
  4. BIOTIN [Concomitant]
     Active Substance: BIOTIN

REACTIONS (5)
  - Infection [None]
  - Exposure during pregnancy [None]
  - Vomiting [None]
  - Umbilical cord around neck [None]
  - Jaundice [None]

NARRATIVE: CASE EVENT DATE: 20070308
